FAERS Safety Report 10222655 (Version 1)
Quarter: 2014Q2

REPORT INFORMATION
  Report Type: Spontaneous
  Country: US (occurrence: US)
  Receive Date: 20140606
  Receipt Date: 20140606
  Transmission Date: 20141212
  Serious: No
  Sender: FDA-Public Use
  Company Number: US-ASTRAZENECA-2014SE39076

PATIENT
  Age: 57 Year
  Sex: Female

DRUGS (3)
  1. NEXIUM [Suspect]
     Indication: GASTROINTESTINAL SOUNDS ABNORMAL
     Route: 048
  2. NEXIUM [Suspect]
     Indication: ABDOMINAL PAIN UPPER
     Route: 048
  3. NEXIUM [Suspect]
     Indication: PEPTIC ULCER
     Route: 048

REACTIONS (2)
  - Flatulence [Unknown]
  - Intentional product misuse [Unknown]
